FAERS Safety Report 8513450 (Version 2)
Quarter: 2012Q4

REPORT INFORMATION
  Report Type: 
  Country: US (occurrence: US)
  Receive Date: 20120416
  Receipt Date: 20120910
  Transmission Date: 20130627
  Serious: Yes (Hospitalization, Disabling, Other)
  Sender: FDA-Public Use
  Company Number: US-PFIZER INC-2012089151

PATIENT
  Age: 49 Year
  Sex: Male

DRUGS (3)
  1. LYRICA [Suspect]
     Indication: FIBROMYALGIA
     Dosage: 150 mg, 3x/day
     Dates: start: 2007
  2. LYRICA [Suspect]
     Indication: NERVE INJURY
  3. METHADONE [Concomitant]
     Dosage: 10 mg, 4x/day

REACTIONS (6)
  - Limb injury [Unknown]
  - Pneumonia [Unknown]
  - Limb amputation [Unknown]
  - Sepsis [Unknown]
  - Skin discolouration [Unknown]
  - Drug withdrawal syndrome [Unknown]
